FAERS Safety Report 22924552 (Version 2)
Quarter: 2023Q4

REPORT INFORMATION
  Report Type: Spontaneous
  Country: CA (occurrence: CA)
  Receive Date: 20230908
  Receipt Date: 20231112
  Transmission Date: 20240110
  Serious: Yes (Death, Life-Threatening, Hospitalization, Disabling, Other)
  Sender: FDA-Public Use
  Company Number: CA-002147023-NVSC2021CA308350

PATIENT
  Age: 80 Year
  Sex: Male
  Weight: 69 kg

DRUGS (51)
  1. ALLOPURINOL [Suspect]
     Active Substance: ALLOPURINOL
     Dosage: 1 DOSAGE FORM, QD
     Route: 048
  2. ALLOPURINOL [Suspect]
     Active Substance: ALLOPURINOL
     Dosage: 1 DOSAGE FORM, QD
     Route: 048
  3. ALLOPURINOL [Suspect]
     Active Substance: ALLOPURINOL
     Indication: Blood uric acid increased
     Dosage: 100 MG, QD
     Route: 048
  4. ALLOPURINOL [Suspect]
     Active Substance: ALLOPURINOL
     Dosage: 100 MG, QD
     Route: 048
  5. ALLOPURINOL [Suspect]
     Active Substance: ALLOPURINOL
     Dosage: 100 MG, QD
     Route: 048
  6. ALLOPURINOL [Suspect]
     Active Substance: ALLOPURINOL
     Dosage: UNK
     Route: 065
  7. AMIODARONE [Suspect]
     Active Substance: AMIODARONE
     Indication: Drug therapy
     Dosage: 150 MG, QD
     Route: 042
  8. AMIODARONE [Suspect]
     Active Substance: AMIODARONE
     Indication: Intentional product misuse
     Dosage: 150 MG, QD
     Route: 042
  9. AMIODARONE [Suspect]
     Active Substance: AMIODARONE
     Indication: Off label use
     Dosage: 150 MG, QD
     Route: 042
  10. AMIODARONE [Suspect]
     Active Substance: AMIODARONE
     Indication: Ventricular fibrillation
     Dosage: 150 MG, QD
     Route: 042
  11. AMIODARONE [Suspect]
     Active Substance: AMIODARONE
     Dosage: 150 MG, QD
     Route: 042
  12. AMIODARONE [Suspect]
     Active Substance: AMIODARONE
     Dosage: 150 MG, QD
     Route: 042
  13. AMIODARONE [Suspect]
     Active Substance: AMIODARONE
     Dosage: 150 MG, QD
     Route: 042
  14. AMIODARONE [Suspect]
     Active Substance: AMIODARONE
     Dosage: 150 MG, QD
     Route: 042
  15. AMIODARONE [Suspect]
     Active Substance: AMIODARONE
     Dosage: 150 MG, QD
     Route: 042
  16. AMIODARONE [Suspect]
     Active Substance: AMIODARONE
     Dosage: 150 MG, QD
     Route: 042
  17. AMIODARONE [Suspect]
     Active Substance: AMIODARONE
     Dosage: 150 MG, QD
     Route: 042
  18. AMIODARONE [Suspect]
     Active Substance: AMIODARONE
     Dosage: 150 MG, QD
     Route: 042
  19. AMIODARONE [Suspect]
     Active Substance: AMIODARONE
     Dosage: UNK
     Route: 065
  20. AMIODARONE HYDROCHLORIDE [Suspect]
     Active Substance: AMIODARONE HYDROCHLORIDE
     Indication: Drug therapy
     Dosage: 150 MG, QD
     Route: 042
  21. AMIODARONE HYDROCHLORIDE [Suspect]
     Active Substance: AMIODARONE HYDROCHLORIDE
     Indication: Ventricular fibrillation
     Dosage: 150 MG, QD
     Route: 042
  22. AMIODARONE HYDROCHLORIDE [Suspect]
     Active Substance: AMIODARONE HYDROCHLORIDE
     Dosage: 150 MG, QD
     Route: 042
  23. AMIODARONE HYDROCHLORIDE [Suspect]
     Active Substance: AMIODARONE HYDROCHLORIDE
     Dosage: 150 MG, QD
     Route: 042
  24. AMIODARONE HYDROCHLORIDE [Suspect]
     Active Substance: AMIODARONE HYDROCHLORIDE
     Dosage: 150 MG, QD
     Route: 042
  25. AMIODARONE HYDROCHLORIDE [Suspect]
     Active Substance: AMIODARONE HYDROCHLORIDE
     Dosage: 150 MG, QD
     Route: 042
  26. AMIODARONE HYDROCHLORIDE [Suspect]
     Active Substance: AMIODARONE HYDROCHLORIDE
     Indication: Off label use
     Dosage: UNK UNK, QD
     Route: 065
  27. AMIODARONE HYDROCHLORIDE [Suspect]
     Active Substance: AMIODARONE HYDROCHLORIDE
     Dosage: UNK UNK, QD
     Route: 065
  28. AMIODARONE HYDROCHLORIDE [Suspect]
     Active Substance: AMIODARONE HYDROCHLORIDE
     Dosage: UNK UNK, QD
     Route: 065
  29. AMIODARONE HYDROCHLORIDE [Suspect]
     Active Substance: AMIODARONE HYDROCHLORIDE
     Dosage: UNK
     Route: 065
  30. CEFTRIAXONE SODIUM [Suspect]
     Active Substance: CEFTRIAXONE SODIUM
     Indication: Bacterial infection
     Dosage: 2 G, QD
     Route: 042
  31. CEFTRIAXONE SODIUM [Suspect]
     Active Substance: CEFTRIAXONE SODIUM
     Dosage: 2 G, QD
     Route: 042
  32. CEFTRIAXONE SODIUM [Suspect]
     Active Substance: CEFTRIAXONE SODIUM
     Dosage: 2 G, QD
     Route: 042
  33. CEFTRIAXONE SODIUM [Suspect]
     Active Substance: CEFTRIAXONE SODIUM
     Dosage: 2 G, QD
     Route: 042
  34. CEFTRIAXONE SODIUM [Suspect]
     Active Substance: CEFTRIAXONE SODIUM
     Dosage: 2 G, QD
     Route: 042
  35. CEFTRIAXONE SODIUM [Suspect]
     Active Substance: CEFTRIAXONE SODIUM
     Dosage: 2 G, QD
     Route: 042
  36. CEFTRIAXONE SODIUM [Suspect]
     Active Substance: CEFTRIAXONE SODIUM
     Dosage: UNK
     Route: 065
  37. ONDANSETRON [Suspect]
     Active Substance: ONDANSETRON
     Dosage: 1 DOSAGE FORM
     Route: 042
  38. ONDANSETRON [Suspect]
     Active Substance: ONDANSETRON
     Indication: Nausea
     Dosage: 12 MG, Q8H
     Route: 042
  39. ONDANSETRON [Suspect]
     Active Substance: ONDANSETRON
     Dosage: 12 MG, Q8H
     Route: 042
  40. ONDANSETRON [Suspect]
     Active Substance: ONDANSETRON
     Dosage: 120.0 DOSAGE FORM
     Route: 042
  41. ONDANSETRON [Suspect]
     Active Substance: ONDANSETRON
     Dosage: 36 MG, Q8H
     Route: 042
  42. ONDANSETRON [Suspect]
     Active Substance: ONDANSETRON
     Dosage: 36 MG, Q8H
     Route: 042
  43. ONDANSETRON [Suspect]
     Active Substance: ONDANSETRON
     Dosage: 4.0 MG, QD
     Route: 042
  44. ONDANSETRON [Suspect]
     Active Substance: ONDANSETRON
     Dosage: 4.0 MG, QD
     Route: 042
  45. ONDANSETRON [Suspect]
     Active Substance: ONDANSETRON
     Dosage: 40.0 MG, Q8H
     Route: 042
  46. ONDANSETRON [Suspect]
     Active Substance: ONDANSETRON
     Dosage: 40.0 MG, Q8H
     Route: 042
  47. ONDANSETRON [Suspect]
     Active Substance: ONDANSETRON
     Indication: Vomiting
     Dosage: 41.14 MG
     Route: 042
  48. ONDANSETRON [Suspect]
     Active Substance: ONDANSETRON
     Dosage: 41.14 MG
     Route: 042
  49. ONDANSETRON [Suspect]
     Active Substance: ONDANSETRON
     Dosage: UNK
     Route: 065
  50. POTASSIUM CHLORIDE [Suspect]
     Active Substance: POTASSIUM CHLORIDE
     Indication: Product used for unknown indication
     Dosage: 17.0 G, QD
     Route: 048
  51. POTASSIUM CHLORIDE [Suspect]
     Active Substance: POTASSIUM CHLORIDE
     Dosage: UNK
     Route: 065

REACTIONS (53)
  - Abdominal distension [Fatal]
  - Abdominal pain [Fatal]
  - Appendicitis [Fatal]
  - Appendicolith [Fatal]
  - Ascites [Fatal]
  - Constipation [Fatal]
  - General physical health deterioration [Fatal]
  - Hyponatraemia [Fatal]
  - Multiple organ dysfunction syndrome [Fatal]
  - Nausea [Fatal]
  - Sepsis [Fatal]
  - Ventricular fibrillation [Fatal]
  - Stress [Fatal]
  - Vomiting [Fatal]
  - Blood phosphorus increased [Fatal]
  - Condition aggravated [Fatal]
  - Dry mouth [Fatal]
  - Somnolence [Fatal]
  - Off label use [Fatal]
  - Blood uric acid increased [Fatal]
  - Death [Fatal]
  - Blood cholesterol increased [Fatal]
  - Off label use [Fatal]
  - Abdominal distension [Fatal]
  - Hyponatraemia [Fatal]
  - Cardiogenic shock [Fatal]
  - Drug intolerance [Fatal]
  - Swelling [Fatal]
  - Intentional product misuse [Fatal]
  - Iron deficiency [Fatal]
  - Myasthenia gravis [Fatal]
  - Sleep disorder [Fatal]
  - Drug hypersensitivity [Fatal]
  - Drug hypersensitivity [Fatal]
  - Diabetes mellitus [Fatal]
  - Hypophosphataemia [Fatal]
  - Neuralgia [Fatal]
  - Pulmonary embolism [Fatal]
  - Hyperphosphataemia [Fatal]
  - Anaemia [Fatal]
  - Intentional product misuse [Fatal]
  - Hypophosphataemia [Fatal]
  - Chronic obstructive pulmonary disease [Fatal]
  - Vomiting [Fatal]
  - Dyspnoea [Fatal]
  - Drug hypersensitivity [Fatal]
  - Somnolence [Fatal]
  - Thrombosis [Fatal]
  - Bacterial infection [Fatal]
  - Incorrect route of product administration [Fatal]
  - Off label use [Fatal]
  - Product use in unapproved indication [Fatal]
  - Somnolence [Fatal]

NARRATIVE: CASE EVENT DATE: 20200601
